FAERS Safety Report 8859452 (Version 1)
Quarter: 2012Q4

REPORT INFORMATION
  Report Type: Spontaneous
  Country: US (occurrence: None)
  Receive Date: 20121023
  Receipt Date: 20121023
  Transmission Date: 20130627
  Serious: Yes (Other)
  Sender: FDA-Public Use
  Company Number: 2012MA012591

PATIENT
  Age: 50 Year
  Sex: Male

DRUGS (2)
  1. NAPROXEN [Suspect]
     Indication: LATERAL EPICONDYLITIS
     Route: 048
     Dates: start: 20120903
  2. CLOMIPRAMINE [Concomitant]

REACTIONS (1)
  - Contusion [None]
